FAERS Safety Report 7184998-7 (Version None)
Quarter: 2010Q4

REPORT INFORMATION
  Report Type: 
  Country: None (occurrence: None)
  Receive Date: 20101123
  Receipt Date: 20100823
  Transmission Date: 20110411
  Serious: No
  Sender: FDA-Public Use
  Company Number: 017669

PATIENT
  Sex: Female

DRUGS (1)
  1. CIMZIA [Suspect]
     Dosage: (UNSPECIIFED SUBCUTANEOUS)
     Route: 058
     Dates: start: 20100617

REACTIONS (4)
  - COLONOSCOPY ABNORMAL [None]
  - DIARRHOEA [None]
  - PAIN [None]
  - RECTAL HAEMORRHAGE [None]
